FAERS Safety Report 6362232-5 (Version None)
Quarter: 2009Q3

REPORT INFORMATION
  Report Type: 
  Country: None (occurrence: None)
  Receive Date: 20090918
  Receipt Date: 20090716
  Transmission Date: 20100115
  Serious: Yes (Other)
  Sender: FDA-Public Use
  Company Number: US-ABBOTT-09P-163-0561217-00

PATIENT
  Sex: Female
  Weight: 64.468 kg

DRUGS (9)
  1. HUMIRA [Suspect]
     Indication: RHEUMATOID ARTHRITIS
     Route: 058
     Dates: start: 19980101, end: 20090101
  2. HUMIRA [Suspect]
     Dosage: PEN
     Route: 058
     Dates: start: 20090101, end: 20090201
  3. MG/GM CREAM [Suspect]
     Indication: URINARY INCONTINENCE
     Dosage: FORM: 1 GRAM
     Route: 061
     Dates: start: 20060101, end: 20070101
  4. CYMBALTA [Concomitant]
     Indication: DEPRESSION
     Route: 048
  5. CLONAZEPAM [Concomitant]
     Indication: PANIC ATTACK
     Route: 048
  6. INDERAL [Concomitant]
     Indication: PANIC ATTACK
     Route: 048
  7. ASPIRIN [Concomitant]
     Indication: ROUTINE HEALTH MAINTENANCE
     Route: 048
  8. SYNTHETIC ESTROGEN [Concomitant]
     Indication: URINARY INCONTINENCE
     Dates: start: 20070727, end: 20080701
  9. SYNTHETIC PROGESTERONE [Concomitant]
     Indication: URINARY INCONTINENCE
     Dates: start: 20070727, end: 20080701

REACTIONS (2)
  - BREAST CANCER STAGE I [None]
  - URINARY INCONTINENCE [None]
